APPROVED DRUG PRODUCT: DICLOFENAC SODIUM
Active Ingredient: DICLOFENAC SODIUM
Strength: 1.5%
Dosage Form/Route: SOLUTION;TOPICAL
Application: A205878 | Product #001 | TE Code: AT
Applicant: NOVEL LABORATORIES INC
Approved: Dec 9, 2015 | RLD: No | RS: No | Type: RX